FAERS Safety Report 22131895 (Version 1)
Quarter: 2023Q1

REPORT INFORMATION
  Report Type: Spontaneous
  Country: CA (occurrence: CA)
  Receive Date: 20230323
  Receipt Date: 20230323
  Transmission Date: 20230417
  Serious: Yes (Life-Threatening)
  Sender: FDA-Public Use
  Company Number: CA-FreseniusKabi-FK202303687

PATIENT
  Age: 24 Year
  Sex: Female

DRUGS (1)
  1. PIPERACILLIN SODIUM\TAZOBACTAM SODIUM [Suspect]
     Active Substance: PIPERACILLIN SODIUM\TAZOBACTAM SODIUM
     Indication: Product used for unknown indication

REACTIONS (6)
  - Mouth swelling [Unknown]
  - Pharyngeal swelling [Unknown]
  - Failure to suspend medication [Unknown]
  - Erythema [Unknown]
  - Anaphylactic reaction [Unknown]
  - Abdominal pain [Unknown]
